FAERS Safety Report 16837813 (Version 2)
Quarter: 2023Q4

REPORT INFORMATION
  Report Type: Spontaneous
  Country: BR (occurrence: BR)
  Receive Date: 20190923
  Receipt Date: 20231222
  Transmission Date: 20240109
  Serious: Yes (Other)
  Sender: FDA-Public Use
  Company Number: BR-ABBVIE-19K-020-2929711-00

PATIENT
  Sex: Female

DRUGS (3)
  1. HUMIRA [Suspect]
     Active Substance: ADALIMUMAB
     Indication: Product used for unknown indication
     Route: 058
  2. INFLIXIMAB [Suspect]
     Active Substance: INFLIXIMAB
     Indication: Product used for unknown indication
     Route: 065
  3. PREDNISONE [Suspect]
     Active Substance: PREDNISONE
     Indication: Product used for unknown indication
     Route: 065

REACTIONS (12)
  - Neoplasm [Unknown]
  - Renal impairment [Unknown]
  - Joint tuberculosis [Unknown]
  - Haemangioma [Unknown]
  - Abscess limb [Unknown]
  - Pyrexia [Unknown]
  - Lung disorder [Unknown]
  - Liver disorder [Unknown]
  - Vomiting [Unknown]
  - Discomfort [Unknown]
  - Therapeutic product effect incomplete [Unknown]
  - Osteonecrosis [Unknown]
